FAERS Safety Report 18694696 (Version 1)
Quarter: 2020Q4

REPORT INFORMATION
  Report Type: Spontaneous
  Country: US (occurrence: US)
  Receive Date: 20201230
  Receipt Date: 20201230
  Transmission Date: 20210114
  Serious: Yes (Hospitalization)
  Sender: FDA-Public Use
  Company Number: None

PATIENT
  Sex: Female

DRUGS (2)
  1. TACROLIMUS ++ (ACCORD) 1MG ACCORD HEALTHCARE [Suspect]
     Active Substance: TACROLIMUS
     Indication: LUNG TRANSPLANT
     Route: 048
     Dates: start: 202005
  2. TOBRAMYCIN INHL SOLN 4ML AMPS 300MG/4ML TEVA PHARMACEUTICALS USA [Suspect]
     Active Substance: TOBRAMYCIN
     Indication: PSEUDOMONAS INFECTION
     Dosage: ?          OTHER FREQUENCY:TWICE DAILY DAYS 1-7;?
     Route: 055
     Dates: start: 201907

REACTIONS (1)
  - Product distribution issue [None]
